FAERS Safety Report 4898431-9 (Version None)
Quarter: 2006Q1

REPORT INFORMATION
  Report Type: 
  Country: None (occurrence: None)
  Receive Date: 20060130
  Receipt Date: 20060120
  Transmission Date: 20060701
  Serious: Yes (Other)
  Sender: FDA-Public Use
  Company Number: L06-ESP-00032-02

PATIENT
  Age: 80 Year
  Sex: Female

DRUGS (2)
  1. DILTIAZEM HCL [Suspect]
  2. NIFEDIPINE [Suspect]

REACTIONS (2)
  - DERMATITIS EXFOLIATIVE [None]
  - SKIN TEST POSITIVE [None]
